FAERS Safety Report 9315725 (Version 1)
Quarter: 2013Q2

REPORT INFORMATION
  Report Type: Spontaneous
  Country: US (occurrence: US)
  Receive Date: 20130529
  Receipt Date: 20130529
  Transmission Date: 20140414
  Serious: Yes (Hospitalization)
  Sender: FDA-Public Use
  Company Number: US-FRI-1000045438

PATIENT
  Age: 84 Year
  Sex: Female

DRUGS (1)
  1. LINZESS [Suspect]

REACTIONS (3)
  - Blood potassium decreased [Unknown]
  - Blood sodium decreased [Unknown]
  - Diarrhoea [Unknown]
